FAERS Safety Report 9165188 (Version 1)
Quarter: 2013Q1

REPORT INFORMATION
  Report Type: Spontaneous
  Country: JP (occurrence: JP)
  Receive Date: 20130315
  Receipt Date: 20130315
  Transmission Date: 20140127
  Serious: Yes (Other)
  Sender: FDA-Public Use
  Company Number: JP-ASTELLAS-2013JP003864

PATIENT
  Age: 50 Year
  Sex: Male

DRUGS (7)
  1. PROGRAF [Suspect]
     Indication: ACUTE PROMYELOCYTIC LEUKAEMIA
     Route: 065
  2. PROGRAF [Suspect]
     Route: 065
  3. TRETINOIN [Concomitant]
     Indication: ACUTE PROMYELOCYTIC LEUKAEMIA
     Route: 065
  4. TRETINOIN [Concomitant]
     Route: 065
  5. GEMTUZUMAB OZOGAMICIN [Concomitant]
     Indication: ACUTE PROMYELOCYTIC LEUKAEMIA
     Dosage: 3 MG/M2, UNKNOWN/D
     Route: 065
  6. GEMTUZUMAB OZOGAMICIN [Concomitant]
     Dosage: 3 MG/M2, UNKNOWN/D
     Route: 065
  7. GEMTUZUMAB OZOGAMICIN [Concomitant]
     Dosage: 3 MG/M2, UNKNOWN/D
     Route: 065

REACTIONS (2)
  - Drug ineffective [Unknown]
  - Chronic graft versus host disease [Recovering/Resolving]
